FAERS Safety Report 6192642-0 (Version None)
Quarter: 2009Q2

REPORT INFORMATION
  Report Type: 
  Country: None (occurrence: None)
  Receive Date: 20090518
  Receipt Date: 20090421
  Transmission Date: 20091009
  Serious: No
  Sender: FDA-Public Use
  Company Number: US-JNJFOC-20090405476

PATIENT
  Sex: Female
  Weight: 63.5 kg

DRUGS (2)
  1. INVEGA [Suspect]
     Indication: BIPOLAR DISORDER
     Route: 048
  2. VALIUM [Concomitant]
     Indication: BIPOLAR DISORDER

REACTIONS (1)
  - MENSTRUATION DELAYED [None]
